APPROVED DRUG PRODUCT: AZELAIC ACID
Active Ingredient: AZELAIC ACID
Strength: 15%
Dosage Form/Route: AEROSOL, FOAM;TOPICAL
Application: A210928 | Product #001
Applicant: AUROBINDO PHARMA USA INC
Approved: Oct 7, 2020 | RLD: No | RS: No | Type: DISCN